FAERS Safety Report 4795183-8 (Version None)
Quarter: 2005Q4

REPORT INFORMATION
  Report Type: 
  Country: None (occurrence: None)
  Receive Date: 20051006
  Receipt Date: 20050926
  Transmission Date: 20060501
  Serious: Yes (Other)
  Sender: FDA-Public Use
  Company Number: US-2005-020035

PATIENT
  Sex: Female

DRUGS (25)
  1. CLIMARA [Suspect]
     Indication: HORMONE REPLACEMENT THERAPY
     Dosage: TRANSDERMAL
     Route: 062
  2. ESTROGENS SOL/INJ [Suspect]
     Indication: HORMONE REPLACEMENT THERAPY
  3. PREMARIN [Suspect]
     Indication: HORMONE REPLACEMENT THERAPY
  4. PROVERA [Suspect]
  5. AYGESTIN [Suspect]
     Indication: HORMONE REPLACEMENT THERAPY
  6. PREMPRO [Suspect]
     Indication: HORMONE REPLACEMENT THERAPY
  7. PREMPHASE (PREMARIN;CYCRIN 14/14) [Suspect]
     Indication: HORMONE REPLACEMENT THERAPY
  8. FEMHRT [Suspect]
     Indication: HORMONE REPLACEMENT THERAPY
  9. VAGIFEM [Suspect]
     Indication: HORMONE REPLACEMENT THERAPY
  10. ACTIVELLA [Suspect]
     Indication: HORMONE REPLACEMENT THERAPY
  11. ESTRADIOL [Suspect]
     Indication: HORMONE REPLACEMENT THERAPY
  12. CENESTIN [Suspect]
     Indication: HORMONE REPLACEMENT THERAPY
  13. ESTRADERM [Suspect]
     Indication: HORMONE REPLACEMENT THERAPY
  14. VIVELLE [Suspect]
     Indication: HORMONE REPLACEMENT THERAPY
  15. COMBIPATCH [Suspect]
     Indication: HORMONE REPLACEMENT THERAPY
  16. ESTRACE [Suspect]
     Indication: HORMONE REPLACEMENT THERAPY
  17. ESTRATEST [Suspect]
     Indication: HORMONE REPLACEMENT THERAPY
  18. ESTRATAB [Suspect]
     Indication: HORMONE REPLACEMENT THERAPY
  19. PROMETRIUM [Suspect]
     Indication: HORMONE REPLACEMENT THERAPY
  20. OGEN [Suspect]
     Indication: HORMONE REPLACEMENT THERAPY
  21. ESTROPIPATE [Suspect]
     Indication: HORMONE REPLACEMENT THERAPY
  22. ORTHO TRI-CYCLEN [Suspect]
     Indication: HORMONE REPLACEMENT THERAPY
  23. ORTHO-PREFEST (ESTRADIOL, NORGESTIMATE) [Suspect]
  24. MEDROXYPROGESTERONE ACETATE [Suspect]
     Indication: HORMONE REPLACEMENT THERAPY
  25. CYCRIN [Suspect]
     Indication: HORMONE REPLACEMENT THERAPY

REACTIONS (4)
  - ANXIETY [None]
  - BREAST CANCER FEMALE [None]
  - MARITAL PROBLEM [None]
  - PAIN [None]
